FAERS Safety Report 20533406 (Version 1)
Quarter: 2022Q1

REPORT INFORMATION
  Report Type: Report from Study
  Country: US (occurrence: US)
  Receive Date: 20220301
  Receipt Date: 20220301
  Transmission Date: 20220423
  Serious: Yes (Other)
  Sender: FDA-Public Use
  Company Number: US-TEVA-818596USA

PATIENT
  Age: 51 Year
  Sex: Female

DRUGS (2)
  1. AUSTEDO [Suspect]
     Active Substance: DEUTETRABENAZINE
     Indication: Tardive dyskinesia
     Dosage: 12 MILLIGRAM DAILY; AT TIME OF EVENT, TOOK EXTRA 6 MG FOR TOTAL OF THREE 6 MG TABLETS ON ONE DAY (18
     Route: 065
     Dates: start: 20171011
  2. AUSTEDO [Suspect]
     Active Substance: DEUTETRABENAZINE
     Dosage: 18 MILLIGRAM DAILY; SECOND WEEK
     Route: 065

REACTIONS (3)
  - Suicidal ideation [Recovered/Resolved]
  - Extra dose administered [Unknown]
  - Pain [Unknown]

NARRATIVE: CASE EVENT DATE: 20171001
